FAERS Safety Report 25526573 (Version 2)
Quarter: 2025Q3

REPORT INFORMATION
  Report Type: Report from Study
  Country: GB (occurrence: GB)
  Receive Date: 20250707
  Receipt Date: 20250911
  Transmission Date: 20251020
  Serious: Yes (Other)
  Sender: UCB
  Company Number: GB-UCBSA-2025018750

PATIENT
  Sex: Female

DRUGS (2)
  1. BIMEKIZUMAB [Suspect]
     Active Substance: BIMEKIZUMAB
     Indication: Psoriasis
     Dosage: 320 MILLIGRAM (INJECT TWO PRE-FILLED PENS ON WEEKS 12 AND 16)
     Route: 058
     Dates: start: 202502, end: 2025
  2. BIMEKIZUMAB [Suspect]
     Active Substance: BIMEKIZUMAB
     Dosage: 320 MILLIGRAM (INJECT TWO PRE-FILLED PENS EVERY EIGHT WEEKS )
     Dates: start: 2025

REACTIONS (9)
  - Lower respiratory tract infection [Unknown]
  - Headache [Unknown]
  - Dizziness [Unknown]
  - Injection site pain [Unknown]
  - Pharyngitis [Unknown]
  - Malaise [Unknown]
  - Nausea [Unknown]
  - Arthritis [Unknown]
  - Therapeutic product effect incomplete [Unknown]

NARRATIVE: CASE EVENT DATE: 20250101
